FAERS Safety Report 18494599 (Version 1)
Quarter: 2020Q4

REPORT INFORMATION
  Report Type: Spontaneous
  Country: ZA (occurrence: ZA)
  Receive Date: 20201112
  Receipt Date: 20201112
  Transmission Date: 20210114
  Serious: Yes (Other)
  Sender: FDA-Public Use
  Company Number: ZA-CIPLA LTD.-2020ZA08673

PATIENT

DRUGS (1)
  1. ASTHAVENT [Suspect]
     Active Substance: ALBUTEROL SULFATE
     Indication: ASTHMA
     Dosage: 200 MDI ORAL INHALATION, UNK

REACTIONS (5)
  - Incorrect dose administered by device [Unknown]
  - Heart rate increased [Recovered/Resolved]
  - Product delivery mechanism issue [Unknown]
  - Device delivery system issue [Unknown]
  - Drug ineffective [Recovered/Resolved]
